FAERS Safety Report 6211524-9 (Version None)
Quarter: 2009Q2

REPORT INFORMATION
  Report Type: 
  Country: None (occurrence: None)
  Receive Date: 20090528
  Receipt Date: 20090515
  Transmission Date: 20091009
  Serious: Yes (Disabling, Other)
  Sender: FDA-Public Use
  Company Number: IDA-00209

PATIENT
  Sex: Female

DRUGS (3)
  1. PROPRANOLOL HYDROCHLORIDE [Suspect]
     Indication: LONG QT SYNDROME
     Dosage: 30 MG TID TRANSPLACENTAL
     Route: 064
  2. MEXILENTINE HYDROCHLORIDE [Concomitant]
  3. POTASSIUM CHLORIDE [Concomitant]

REACTIONS (4)
  - DRUG EXPOSURE VIA BREAST MILK [None]
  - HYPOGLYCAEMIA NEONATAL [None]
  - LONG QT SYNDROME CONGENITAL [None]
  - MATERNAL DRUGS AFFECTING FOETUS [None]
